FAERS Safety Report 13225068 (Version 2)
Quarter: 2017Q2

REPORT INFORMATION
  Report Type: Spontaneous
  Country: FR (occurrence: FR)
  Receive Date: 20170213
  Receipt Date: 20170407
  Transmission Date: 20170830
  Serious: Yes (Hospitalization)
  Sender: FDA-Public Use
  Company Number: FR-BAXTER-2017BAX005247

PATIENT
  Age: 19 Year
  Sex: Female

DRUGS (10)
  1. SOLU-MEDROL [Suspect]
     Active Substance: METHYLPREDNISOLONE SODIUM SUCCINATE
     Indication: PRODUCT USED FOR UNKNOWN INDICATION
     Route: 065
     Dates: start: 20170130, end: 20170130
  2. PARACETAMOL [Suspect]
     Active Substance: ACETAMINOPHEN
     Indication: PRODUCT USED FOR UNKNOWN INDICATION
     Route: 065
     Dates: start: 20170130, end: 20170130
  3. DIPRIVAN [Suspect]
     Active Substance: PROPOFOL
     Indication: INDUCTION OF ANAESTHESIA
     Route: 065
     Dates: start: 20170130, end: 20170130
  4. SUPRANE [Suspect]
     Active Substance: DESFLURANE
     Indication: MAINTENANCE OF ANAESTHESIA
     Route: 065
     Dates: start: 20170130, end: 20170130
  5. SUFENTA [Suspect]
     Active Substance: SUFENTANIL CITRATE
     Indication: INDUCTION OF ANAESTHESIA
     Route: 065
     Dates: start: 20170130, end: 20170130
  6. ULTIVA [Suspect]
     Active Substance: REMIFENTANIL HYDROCHLORIDE
     Indication: INDUCTION OF ANAESTHESIA
     Route: 065
     Dates: start: 20170130, end: 20170130
  7. XYLOCAINE [Suspect]
     Active Substance: LIDOCAINE HYDROCHLORIDE
     Indication: DENTAL LOCAL ANAESTHESIA
  8. BETADINE [Suspect]
     Active Substance: POVIDONE-IODINE
     Indication: IRRIGATION THERAPY
     Route: 002
     Dates: start: 20170130, end: 20170130
  9. XYLOCAINE [Suspect]
     Active Substance: LIDOCAINE HYDROCHLORIDE
     Indication: MAINTENANCE OF ANAESTHESIA
     Route: 004
     Dates: start: 20170130, end: 20170130
  10. BETADINE [Suspect]
     Active Substance: POVIDONE-IODINE
     Indication: DENTAL DISORDER PROPHYLAXIS
     Route: 002
     Dates: start: 20170130, end: 20170130

REACTIONS (6)
  - Tachycardia [Unknown]
  - Eyelid oedema [Recovered/Resolved]
  - Generalised erythema [Recovered/Resolved]
  - Conjunctival hyperaemia [Recovered/Resolved]
  - Bronchospasm [Recovered/Resolved]
  - Blood pressure decreased [Recovered/Resolved]

NARRATIVE: CASE EVENT DATE: 20170130
